FAERS Safety Report 18702163 (Version 1)
Quarter: 2021Q1

REPORT INFORMATION
  Report Type: Spontaneous
  Country: US (occurrence: US)
  Receive Date: 20210105
  Receipt Date: 20210105
  Transmission Date: 20210419
  Serious: Yes (Other)
  Sender: FDA-Public Use
  Company Number: US-PFIZER INC-2020519840

PATIENT
  Age: 29 Year
  Sex: Male
  Weight: 86.18 kg

DRUGS (2)
  1. IBUPROFEN. [Interacting]
     Active Substance: IBUPROFEN
     Dosage: UNK (IBUPROFEN 800MG / 2,000 OR 3,000)
  2. VIAGRA [Suspect]
     Active Substance: SILDENAFIL CITRATE
     Indication: ERECTILE DYSFUNCTION
     Dosage: 100 MG, MONTHLY (ABOUT ONCE A MONTH IN A FULL MOON)
     Dates: start: 202007

REACTIONS (3)
  - Drug interaction [Unknown]
  - Dysuria [Not Recovered/Not Resolved]
  - Erection increased [Unknown]

NARRATIVE: CASE EVENT DATE: 202007
